FAERS Safety Report 16160392 (Version 3)
Quarter: 2019Q2

REPORT INFORMATION
  Report Type: Spontaneous
  Country: US (occurrence: US)
  Receive Date: 20190404
  Receipt Date: 20190502
  Transmission Date: 20190711
  Serious: Yes (Other)
  Sender: FDA-Public Use
  Company Number: US-ALEXION PHARMACEUTICALS INC-A201904847

PATIENT
  Sex: Male

DRUGS (3)
  1. ULTOMIRIS [Suspect]
     Active Substance: RAVULIZUMAB-CWVZ
     Dosage: UNK
     Route: 065
  2. SOLIRIS [Suspect]
     Active Substance: ECULIZUMAB
     Indication: PAROXYSMAL NOCTURNAL HAEMOGLOBINURIA
     Dosage: UNK
     Route: 065
     Dates: start: 20190327
  3. ULTOMIRIS [Suspect]
     Active Substance: RAVULIZUMAB-CWVZ
     Indication: PAROXYSMAL NOCTURNAL HAEMOGLOBINURIA
     Dosage: UNK
     Route: 042
     Dates: start: 20190123, end: 20190206

REACTIONS (18)
  - Haptoglobin decreased [Not Recovered/Not Resolved]
  - Blood lactate dehydrogenase increased [Unknown]
  - Pallor [Unknown]
  - Laboratory test abnormal [Not Recovered/Not Resolved]
  - Nasopharyngitis [Recovered/Resolved]
  - Ocular icterus [Not Recovered/Not Resolved]
  - Fatigue [Unknown]
  - Haemolysis [Not Recovered/Not Resolved]
  - Malaise [Not Recovered/Not Resolved]
  - Insomnia [Not Recovered/Not Resolved]
  - Haemoglobin decreased [Unknown]
  - Pyrexia [Not Recovered/Not Resolved]
  - Jaundice [Not Recovered/Not Resolved]
  - Headache [Recovering/Resolving]
  - Symptom recurrence [Unknown]
  - Blood bilirubin increased [Not Recovered/Not Resolved]
  - Vasodilatation [Unknown]
  - Back pain [Unknown]

NARRATIVE: CASE EVENT DATE: 201903
